FAERS Safety Report 5514213-9 (Version None)
Quarter: 2007Q4

REPORT INFORMATION
  Report Type: 
  Country: None (occurrence: None)
  Receive Date: 20071031
  Receipt Date: 20070809
  Transmission Date: 20080405
  Serious: Yes (Hospitalization, Disabling)
  Sender: FDA-Public Use
  Company Number: US020996

PATIENT
  Sex: Male
  Weight: 87.0906 kg

DRUGS (4)
  1. PROVIGIL [Suspect]
     Indication: NARCOLEPSY
     Dosage: 400 MG TID ORAL
     Route: 048
     Dates: end: 20070701
  2. PROVIGIL [Suspect]
     Indication: NARCOLEPSY
     Dosage: 200 MG TID ORAL
     Route: 048
     Dates: start: 20070701, end: 20070701
  3. PROVIGIL [Suspect]
     Indication: NARCOLEPSY
     Dosage: 400 MG TID ORAL
     Route: 048
     Dates: start: 20070701
  4. ADDERALL 10 [Concomitant]

REACTIONS (8)
  - ASTHMA [None]
  - CHEST PAIN [None]
  - DRUG INEFFECTIVE [None]
  - DYSPNOEA [None]
  - HYPERTENSION [None]
  - OEDEMA [None]
  - TACHYCARDIA [None]
  - VASODILATATION [None]
